FAERS Safety Report 24033372 (Version 1)
Quarter: 2024Q3

REPORT INFORMATION
  Report Type: Spontaneous
  Country: US (occurrence: US)
  Receive Date: 20240701
  Receipt Date: 20240701
  Transmission Date: 20241016
  Serious: No
  Sender: AMGEN
  Company Number: US-AMGEN-USASP2024125254

PATIENT
  Age: 63 Year
  Sex: Male

DRUGS (1)
  1. PREDNISONE [Suspect]
     Active Substance: PREDNISONE
     Indication: Pleurisy
     Dosage: UNK
     Route: 065

REACTIONS (2)
  - Transaminases increased [Recovered/Resolved]
  - Alpha-1 antitrypsin deficiency [Recovered/Resolved]
